FAERS Safety Report 17299100 (Version 4)
Quarter: 2020Q3

REPORT INFORMATION
  Report Type: Spontaneous
  Country: US (occurrence: US)
  Receive Date: 20200121
  Receipt Date: 20200928
  Transmission Date: 20201102
  Serious: Yes (Hospitalization, Other)
  Sender: FDA-Public Use
  Company Number: US-JNJFOC-20200124855

PATIENT
  Age: 93 Year
  Sex: Male

DRUGS (11)
  1. LEVOTHYROXINE. [Concomitant]
     Active Substance: LEVOTHYROXINE
     Route: 048
  2. ERLEADA [Suspect]
     Active Substance: APALUTAMIDE
     Indication: PRODUCT USED FOR UNKNOWN INDICATION
     Route: 048
     Dates: start: 20191019, end: 20191105
  3. ERLEADA [Suspect]
     Active Substance: APALUTAMIDE
     Route: 048
     Dates: start: 20191202, end: 20191226
  4. ERLEADA [Suspect]
     Active Substance: APALUTAMIDE
     Dosage: 2 PILLS A DAY
     Route: 048
     Dates: start: 20200110, end: 20200402
  5. ASPIRIN                            /00002701/ [Concomitant]
     Active Substance: ASPIRIN
     Route: 048
  6. PRAVASTATIN. [Concomitant]
     Active Substance: PRAVASTATIN
     Route: 048
  7. NEXIUM [Concomitant]
     Active Substance: ESOMEPRAZOLE MAGNESIUM
     Route: 048
  8. HYOSCYAMINE. [Concomitant]
     Active Substance: HYOSCYAMINE
     Route: 048
  9. TIZANIDINE. [Concomitant]
     Active Substance: TIZANIDINE
     Indication: LIMB DISCOMFORT
     Route: 048
  10. FUROSEMIDE. [Concomitant]
     Active Substance: FUROSEMIDE
     Route: 048
  11. MUPIROCIN. [Concomitant]
     Active Substance: MUPIROCIN
     Dosage: 2%
     Route: 061

REACTIONS (6)
  - Transfusion [Unknown]
  - Anxiety [Unknown]
  - Headache [Unknown]
  - Oropharyngeal pain [Unknown]
  - Vision blurred [Unknown]
  - Bacterial test positive [Unknown]

NARRATIVE: CASE EVENT DATE: 201911
